FAERS Safety Report 13801864 (Version 1)
Quarter: 2017Q3

REPORT INFORMATION
  Report Type: Spontaneous
  Country: US (occurrence: US)
  Receive Date: 20170727
  Receipt Date: 20170727
  Transmission Date: 20171127
  Serious: No
  Sender: FDA-Public Use
  Company Number: US-ASTRAZENECA-2017SE75266

PATIENT
  Age: 68 Year
  Sex: Female
  Weight: 49.9 kg

DRUGS (9)
  1. NEXIUM [Suspect]
     Active Substance: ESOMEPRAZOLE MAGNESIUM
     Indication: GASTROOESOPHAGEAL REFLUX DISEASE
     Route: 048
  2. FIBER PILLS FROM EQUATE [Concomitant]
     Dosage: DAILY
     Route: 048
     Dates: start: 201701
  3. CALCIUM [Suspect]
     Active Substance: CALCIUM
     Dosage: 600 MG
     Route: 065
  4. AMLODIPINE BESYLATE. [Concomitant]
     Active Substance: AMLODIPINE BESYLATE
     Indication: BLOOD PRESSURE ABNORMAL
     Route: 048
  5. PANTOPRAZOLE [Suspect]
     Active Substance: PANTOPRAZOLE
     Route: 065
  6. LEVOTHYROXINE. [Concomitant]
     Active Substance: LEVOTHYROXINE
     Indication: THYROID DISORDER
     Route: 048
  7. ATORVASTATIN [Concomitant]
     Active Substance: ATORVASTATIN
     Indication: BLOOD PRESSURE ABNORMAL
     Route: 048
     Dates: start: 2016
  8. ASPIRIN. [Concomitant]
     Active Substance: ASPIRIN
     Indication: ISCHAEMIC HEART DISEASE PROPHYLAXIS
     Route: 048
     Dates: start: 2017
  9. VALSARTAN. [Concomitant]
     Active Substance: VALSARTAN
     Indication: BLOOD PRESSURE ABNORMAL
     Route: 048

REACTIONS (15)
  - Hiccups [Unknown]
  - Osteoporosis [Unknown]
  - Regurgitation [Unknown]
  - Blood pressure increased [Unknown]
  - Intentional product misuse [Unknown]
  - Feeling abnormal [Unknown]
  - Weight decreased [Unknown]
  - Abdominal discomfort [Unknown]
  - Dysphagia [Unknown]
  - Fatigue [Unknown]
  - Constipation [Unknown]
  - Throat irritation [Unknown]
  - Asthenia [Unknown]
  - Malaise [Unknown]
  - Renal cyst [Unknown]

NARRATIVE: CASE EVENT DATE: 2016
